FAERS Safety Report 8421011-5 (Version None)
Quarter: 2012Q2

REPORT INFORMATION
  Report Type: 
  Country: None (occurrence: None)
  Receive Date: 20120608
  Receipt Date: 20120601
  Transmission Date: 20120825
  Serious: No
  Sender: FDA-Public Use
  Company Number: US-PFIZER INC-2012132361

PATIENT
  Sex: Male
  Weight: 106 kg

DRUGS (9)
  1. NICOTROL [Suspect]
     Indication: TOBACCO ABUSE
     Dosage: UNK
     Route: 055
  2. GLYBURIDE [Concomitant]
     Indication: DIABETES MELLITUS
     Dosage: 2.5 MG, 2X/DAY
  3. TRAMADOL [Concomitant]
     Indication: LIMB INJURY
     Dosage: 50 MG, DAILY
  4. METFORMIN [Concomitant]
     Indication: DIABETES MELLITUS
     Dosage: 500 MG, 5X/DAY
  5. DIOVAN [Concomitant]
     Indication: HYPERTENSION
     Dosage: 150 MG, DAILY
  6. ASPIRIN [Concomitant]
     Indication: BLOOD DISORDER
     Dosage: 325 MG, DAILY
  7. ALLEGRA-D 12 HOUR [Concomitant]
     Indication: SINUS DISORDER
     Dosage: UNK
  8. ZICAN [Concomitant]
     Indication: SINUS DISORDER
     Dosage: UNK
  9. BENADRYL [Concomitant]
     Indication: SINUS DISORDER
     Dosage: 25 MG, 2X/DAY

REACTIONS (10)
  - DEPRESSION [None]
  - ANXIETY [None]
  - GLYCOSYLATED HAEMOGLOBIN INCREASED [None]
  - SLEEP DISORDER [None]
  - DISTURBANCE IN ATTENTION [None]
  - FEELING ABNORMAL [None]
  - SINUS DISORDER [None]
  - FORMICATION [None]
  - HEADACHE [None]
  - HEARING IMPAIRED [None]
